FAERS Safety Report 25810583 (Version 1)
Quarter: 2025Q3

REPORT INFORMATION
  Report Type: Spontaneous
  Country: US (occurrence: US)
  Receive Date: 20250917
  Receipt Date: 20250917
  Transmission Date: 20251020
  Serious: Yes (Other)
  Sender: COOPERSURGICAL
  Company Number: US-COOPERSURGICAL, INC.-2025CPS006663

PATIENT
  Age: 29 Year
  Sex: Female
  Weight: 113.38 kg

DRUGS (1)
  1. PARAGARD T 380A [Suspect]
     Active Substance: COPPER
     Route: 015
     Dates: start: 20061101

REACTIONS (22)
  - Reproductive complication associated with device [Not Recovered/Not Resolved]
  - Infertility female [Not Recovered/Not Resolved]
  - Device breakage [Recovered/Resolved]
  - Foreign body in urogenital tract [Recovered/Resolved]
  - Complication of device removal [Recovered/Resolved]
  - Embedded device [Recovered/Resolved]
  - Syncope [Unknown]
  - Procedural pain [Recovered/Resolved]
  - Emotional distress [Unknown]
  - Post procedural haemorrhage [Recovered/Resolved]
  - Dehydration [Unknown]
  - Vision blurred [Unknown]
  - Asthenia [Unknown]
  - Vaginal odour [Recovered/Resolved]
  - Dizziness [Unknown]
  - Pain [Unknown]
  - Muscle spasms [Recovered/Resolved]
  - Heavy menstrual bleeding [Recovered/Resolved]
  - Vaginal discharge [Unknown]
  - Menstruation irregular [Recovered/Resolved]
  - Intermenstrual bleeding [Unknown]
  - Pelvic discomfort [Unknown]

NARRATIVE: CASE EVENT DATE: 20061101
